FAERS Safety Report 14744114 (Version 1)
Quarter: 2018Q2

REPORT INFORMATION
  Report Type: Spontaneous
  Country: TR (occurrence: CN)
  Receive Date: 20180411
  Receipt Date: 20180411
  Transmission Date: 20180711
  Serious: Yes (Other)
  Sender: FDA-Public Use
  Company Number: TR-CIPLA LTD.-2018CN15027

PATIENT

DRUGS (16)
  1. FLUOROURACIL. [Suspect]
     Active Substance: FLUOROURACIL
     Indication: ADENOCARCINOMA GASTRIC
     Dosage: 1000 MG/M2, 3 CYCLES
     Route: 065
  2. LEUCOVORIN                         /00566701/ [Suspect]
     Active Substance: LEUCOVORIN
     Indication: ADENOCARCINOMA GASTRIC
     Dosage: 15 MG, 3 CYCLES
     Route: 065
  3. DOXORUBICIN HYDROCHLORIDE. [Suspect]
     Active Substance: DOXORUBICIN HYDROCHLORIDE
     Indication: HODGKIN^S DISEASE
  4. VINBLASTINE [Suspect]
     Active Substance: VINBLASTINE
     Indication: HODGKIN^S DISEASE
  5. EPIRUBICIN [Suspect]
     Active Substance: EPIRUBICIN
     Indication: ADENOCARCINOMA GASTRIC
     Dosage: 50 MG/M2, 3 CYCLES
     Route: 065
  6. BLEOMYCIN SULPHATE [Suspect]
     Active Substance: BLEOMYCIN SULFATE
     Indication: HODGKIN^S DISEASE
  7. BLEOMYCIN SULPHATE [Suspect]
     Active Substance: BLEOMYCIN SULFATE
     Indication: ADENOCARCINOMA GASTRIC
     Dosage: UNK, 8 CYCLES
     Route: 065
  8. VINBLASTINE [Suspect]
     Active Substance: VINBLASTINE
     Indication: ADENOCARCINOMA GASTRIC
     Dosage: UNK, 8 CYCLES
     Route: 065
  9. FLUOROURACIL. [Suspect]
     Active Substance: FLUOROURACIL
     Indication: HODGKIN^S DISEASE
     Dosage: 725 MG, DAYS 1-5 SINGLE CYCLE
     Route: 065
  10. DACARBAZINE. [Suspect]
     Active Substance: DACARBAZINE
     Indication: HODGKIN^S DISEASE
  11. EPIRUBICIN [Suspect]
     Active Substance: EPIRUBICIN
     Indication: HODGKIN^S DISEASE
  12. CISPLATIN. [Suspect]
     Active Substance: CISPLATIN
     Indication: HODGKIN^S DISEASE
  13. DACARBAZINE. [Suspect]
     Active Substance: DACARBAZINE
     Indication: ADENOCARCINOMA GASTRIC
     Dosage: UNK, 8 CYCLES
     Route: 065
  14. CISPLATIN. [Suspect]
     Active Substance: CISPLATIN
     Indication: ADENOCARCINOMA GASTRIC
     Dosage: 60 MG/M2, 3 CYCLES
     Route: 065
  15. DOXORUBICIN HYDROCHLORIDE. [Suspect]
     Active Substance: DOXORUBICIN HYDROCHLORIDE
     Indication: ADENOCARCINOMA GASTRIC
     Dosage: UNK, 8 CYCLES
     Route: 065
  16. LEUCOVORIN                         /00566701/ [Suspect]
     Active Substance: LEUCOVORIN
     Indication: HODGKIN^S DISEASE
     Dosage: 35 MG, DAYS 1 -5 SINGLE CYCLE
     Route: 065

REACTIONS (1)
  - Metastases to bone [Unknown]
